FAERS Safety Report 7241633-7 (Version None)
Quarter: 2011Q1

REPORT INFORMATION
  Report Type: 
  Country: None (occurrence: None)
  Receive Date: 20110124
  Receipt Date: 20110110
  Transmission Date: 20110831
  Serious: Yes (Other)
  Sender: FDA-Public Use
  Company Number: PHHY2011PT02018

PATIENT
  Age: 13 Year

DRUGS (1)
  1. CICLOSPORIN [Suspect]
     Indication: DERMATITIS ATOPIC
     Route: 048

REACTIONS (4)
  - RENAL IMPAIRMENT [None]
  - HERPES VIRUS INFECTION [None]
  - DRUG INTERACTION [None]
  - LIVER DISORDER [None]
